FAERS Safety Report 7380570-4 (Version None)
Quarter: 2011Q1

REPORT INFORMATION
  Report Type: 
  Country: None (occurrence: None)
  Receive Date: 20110329
  Receipt Date: 20110316
  Transmission Date: 20110831
  Serious: Yes (Hospitalization)
  Sender: FDA-Public Use
  Company Number: US-ACTELION-A-NJ2010-36665

PATIENT

DRUGS (3)
  1. TRACLEER [Suspect]
     Indication: PULMONARY ARTERIAL HYPERTENSION
     Dosage: UNK
     Route: 048
     Dates: start: 20070926
  2. WARFARIN SODIUM [Concomitant]
  3. REVATIO [Concomitant]

REACTIONS (3)
  - TRANSPLANT [None]
  - CARDIAC FAILURE [None]
  - CARDIAC OPERATION [None]
